FAERS Safety Report 24815336 (Version 1)
Quarter: 2025Q1

REPORT INFORMATION
  Report Type: Spontaneous
  Country: US (occurrence: US)
  Receive Date: 20250107
  Receipt Date: 20250107
  Transmission Date: 20250409
  Serious: Yes (Other)
  Sender: BAYER HEALTHCARE LLC
  Company Number: US-BAYER-2025A001378

PATIENT
  Age: 69 Year
  Sex: Female

DRUGS (3)
  1. MIRALAX [Suspect]
     Active Substance: POLYETHYLENE GLYCOL 3350
     Indication: Prophylaxis
     Route: 048
  2. ELIQUIS [Concomitant]
     Active Substance: APIXABAN
     Indication: Prophylaxis
     Dosage: 5 MG, BID
     Route: 048
  3. METOPROLOL [Concomitant]
     Active Substance: METOPROLOL
     Indication: Prophylaxis
     Dosage: 25 MG, BID
     Route: 048

REACTIONS (4)
  - Choking [Recovering/Resolving]
  - Foreign body ingestion [None]
  - Product contamination physical [None]
  - Product use in unapproved indication [None]
